FAERS Safety Report 22653498 (Version 5)
Quarter: 2023Q4

REPORT INFORMATION
  Report Type: Report from Study
  Country: DE (occurrence: DE)
  Receive Date: 20230629
  Receipt Date: 20231227
  Transmission Date: 20240110
  Serious: Yes (Hospitalization)
  Sender: FDA-Public Use
  Company Number: DE-JNJFOC-20230646047

PATIENT
  Age: 34 Year
  Sex: Male
  Weight: 115 kg

DRUGS (6)
  1. GUSELKUMAB [Suspect]
     Active Substance: GUSELKUMAB
     Indication: Product used for unknown indication
     Route: 065
     Dates: start: 20221024
  2. GUSELKUMAB [Suspect]
     Active Substance: GUSELKUMAB
     Route: 065
     Dates: start: 20221121
  3. GUSELKUMAB [Suspect]
     Active Substance: GUSELKUMAB
     Route: 065
     Dates: start: 20230116
  4. GUSELKUMAB [Suspect]
     Active Substance: GUSELKUMAB
     Route: 065
     Dates: start: 20230313
  5. GUSELKUMAB [Suspect]
     Active Substance: GUSELKUMAB
     Route: 065
     Dates: start: 20230523
  6. CLOBETASOL PROPIONATE [Concomitant]
     Active Substance: CLOBETASOL PROPIONATE
     Indication: Psoriasis
     Route: 061
     Dates: start: 20230111

REACTIONS (1)
  - Erysipelas [Not Recovered/Not Resolved]

NARRATIVE: CASE EVENT DATE: 20230502
